FAERS Safety Report 19208253 (Version 2)
Quarter: 2021Q3

REPORT INFORMATION
  Report Type: Report from Study
  Country: US (occurrence: US)
  Receive Date: 20210503
  Receipt Date: 20210701
  Transmission Date: 20211014
  Serious: Yes (Hospitalization, Other)
  Sender: FDA-Public Use
  Company Number: US-JNJFOC-20210450396

PATIENT
  Age: 65 Year
  Sex: Female
  Weight: 58.2 kg

DRUGS (3)
  1. ELIQUIS [Concomitant]
     Active Substance: APIXABAN
  2. TADALAFIL. [Concomitant]
     Active Substance: TADALAFIL
  3. MACITENTAN [Suspect]
     Active Substance: MACITENTAN
     Indication: PULMONARY ARTERIAL HYPERTENSION
     Route: 048

REACTIONS (3)
  - Syncope [Unknown]
  - Pneumonia [Unknown]
  - Hypotension [Unknown]

NARRATIVE: CASE EVENT DATE: 20210408
